FAERS Safety Report 7219951-8 (Version None)
Quarter: 2011Q1

REPORT INFORMATION
  Report Type: 
  Country: None (occurrence: None)
  Receive Date: 20110111
  Receipt Date: 20110107
  Transmission Date: 20110831
  Serious: Yes (Other)
  Sender: FDA-Public Use
  Company Number: US-AMGEN-USASP2011001064

PATIENT

DRUGS (2)
  1. NPLATE [Suspect]
     Indication: IDIOPATHIC THROMBOCYTOPENIC PURPURA
     Dosage: 0.18 UNK, UNK
     Dates: start: 20101015
  2. PREDNISONE [Concomitant]
     Dosage: 40 MG, UNK

REACTIONS (5)
  - ARTHRALGIA [None]
  - ASTHENIA [None]
  - BIPOLAR DISORDER [None]
  - PLATELET COUNT DECREASED [None]
  - FEELING ABNORMAL [None]
